FAERS Safety Report 8442431 (Version 4)
Quarter: 2013Q1

REPORT INFORMATION
  Report Type: Spontaneous
  Country: US (occurrence: None)
  Receive Date: 20120224
  Receipt Date: 20130326
  Transmission Date: 20140127
  Serious: Yes (Hospitalization, Other)
  Sender: FDA-Public Use
  Company Number: ACO_29406_2012

PATIENT
  Age: 52 Year
  Sex: Male
  Weight: 83 kg

DRUGS (9)
  1. AMPYRA [Suspect]
     Indication: GAIT DISTURBANCE
     Dosage: 10 MG, BID, ORAL; (EVERY 12 HRS.)
     Route: 048
     Dates: start: 201101
  2. REMERON [Concomitant]
  3. KLONOPIN [Concomitant]
  4. NEURONTIN [Concomitant]
  5. ZANAFLEX [Concomitant]
  6. BACLOFEN [Concomitant]
  7. VITAMIN B6 [Concomitant]
  8. OXYCODONE WITH APAP (OXYCODONE HYDROCHLORIDE, PARACETAMOL) [Concomitant]
  9. INDOMETHACIN (INDOMETACIN) [Concomitant]

REACTIONS (6)
  - Pneumonia staphylococcal [None]
  - Nephrolithiasis [None]
  - Aspiration [None]
  - Gait disturbance [None]
  - Wisdom teeth removal [None]
  - Multiple sclerosis relapse [None]
